FAERS Safety Report 16292376 (Version 3)
Quarter: 2022Q4

REPORT INFORMATION
  Report Type: Spontaneous
  Country: US (occurrence: None)
  Receive Date: 20190509
  Receipt Date: 20221011
  Transmission Date: 20230113
  Serious: Yes (Other)
  Sender: FDA-Public Use
  Company Number: 2019SE63143

PATIENT
  Age: 46 Year
  Sex: Female

DRUGS (53)
  1. NEXIUM [Suspect]
     Active Substance: ESOMEPRAZOLE MAGNESIUM
     Indication: Gastrooesophageal reflux disease
     Route: 048
     Dates: start: 199901, end: 199901
  2. NEXIUM [Suspect]
     Active Substance: ESOMEPRAZOLE MAGNESIUM
     Indication: Gastrooesophageal reflux disease
     Route: 048
     Dates: start: 2001, end: 2006
  3. PRILOSEC [Suspect]
     Active Substance: OMEPRAZOLE MAGNESIUM
     Indication: Gastrooesophageal reflux disease
     Route: 048
     Dates: start: 199901, end: 199901
  4. PRILOSEC [Suspect]
     Active Substance: OMEPRAZOLE MAGNESIUM
     Indication: Gastrooesophageal reflux disease
     Dosage: GENERIC
     Route: 065
     Dates: start: 20080227, end: 20100315
  5. PRILOSEC [Suspect]
     Active Substance: OMEPRAZOLE MAGNESIUM
     Indication: Gastrooesophageal reflux disease
     Route: 048
     Dates: start: 2000, end: 2006
  6. DEXILANT [Suspect]
     Active Substance: DEXLANSOPRAZOLE
     Indication: Gastrooesophageal reflux disease
     Route: 065
     Dates: start: 199901, end: 199901
  7. DEXILANT [Suspect]
     Active Substance: DEXLANSOPRAZOLE
     Indication: Gastrooesophageal reflux disease
     Route: 065
     Dates: start: 20110317, end: 20110502
  8. PREVACID [Suspect]
     Active Substance: LANSOPRAZOLE
     Indication: Gastrooesophageal reflux disease
     Route: 065
     Dates: start: 199901, end: 199901
  9. PREVACID [Suspect]
     Active Substance: LANSOPRAZOLE
     Indication: Gastrooesophageal reflux disease
     Route: 065
     Dates: start: 1990, end: 2006
  10. PROTONIX [Suspect]
     Active Substance: PANTOPRAZOLE SODIUM
     Indication: Gastrooesophageal reflux disease
     Route: 065
     Dates: start: 199901, end: 199901
  11. PROTONIX [Suspect]
     Active Substance: PANTOPRAZOLE SODIUM
     Indication: Gastrooesophageal reflux disease
     Dosage: GENERIC
     Route: 065
     Dates: start: 20130313
  12. PROTONIX [Suspect]
     Active Substance: PANTOPRAZOLE SODIUM
     Indication: Gastrooesophageal reflux disease
     Route: 065
     Dates: start: 20090910, end: 20130301
  13. SULFAMETOXYDIAZINE/TRIMETHOPRIM [Concomitant]
     Indication: Infection
  14. HYDRALAZINE [Concomitant]
     Active Substance: HYDRALAZINE HYDROCHLORIDE
     Indication: Hypertension
  15. AMOXICILLIN [Concomitant]
     Active Substance: AMOXICILLIN
     Indication: Infection
  16. FUROSEMIDE [Concomitant]
     Active Substance: FUROSEMIDE
     Indication: Cardiac disorder
  17. PLAVIX [Concomitant]
     Active Substance: CLOPIDOGREL BISULFATE
     Indication: Cardiac disorder
  18. TYLENOL [Concomitant]
     Active Substance: ACETAMINOPHEN
     Indication: Headache
  19. ROLAIDS [Concomitant]
     Active Substance: CALCIUM CARBONATE\MAGNESIUM HYDROXIDE
  20. CEPHALEXIN [Concomitant]
     Active Substance: CEPHALEXIN
  21. OXYCODONE [Concomitant]
     Active Substance: OXYCODONE
  22. HYDROCODONE [Concomitant]
     Active Substance: HYDROCODONE
  23. ACETAMINOPHEN [Concomitant]
     Active Substance: ACETAMINOPHEN
  24. TIZANIDINE [Concomitant]
     Active Substance: TIZANIDINE
  25. METHYLPREDNISOLONE [Concomitant]
     Active Substance: METHYLPREDNISOLONE
  26. ELIQUIS [Concomitant]
     Active Substance: APIXABAN
  27. ONDANSETRON [Concomitant]
     Active Substance: ONDANSETRON
  28. PROAIR HFA [Concomitant]
     Active Substance: ALBUTEROL SULFATE
  29. MORPHINE [Concomitant]
     Active Substance: MORPHINE
  30. MECLIZINE [Concomitant]
     Active Substance: MECLIZINE HYDROCHLORIDE
  31. GLIPIZIDE [Concomitant]
     Active Substance: GLIPIZIDE
  32. ALPRAZOLAM [Concomitant]
     Active Substance: ALPRAZOLAM
  33. METFORMIN [Concomitant]
     Active Substance: METFORMIN HYDROCHLORIDE
  34. CARVEDILOL [Concomitant]
     Active Substance: CARVEDILOL
  35. POTASSIUM CHLORIDE [Concomitant]
     Active Substance: POTASSIUM CHLORIDE
  36. SIMVASTATIN [Concomitant]
     Active Substance: SIMVASTATIN
  37. BACLOFEN [Concomitant]
     Active Substance: BACLOFEN
  38. LISINOPRIL [Concomitant]
     Active Substance: LISINOPRIL
  39. LEXAPRO [Concomitant]
     Active Substance: ESCITALOPRAM OXALATE
  40. ACIPHEX [Concomitant]
     Active Substance: RABEPRAZOLE SODIUM
  41. COREG [Concomitant]
     Active Substance: CARVEDILOL
  42. VICODIN [Concomitant]
     Active Substance: ACETAMINOPHEN\HYDROCODONE BITARTRATE
  43. ZANAFLEX [Concomitant]
     Active Substance: TIZANIDINE HYDROCHLORIDE
  44. ASPIRIN [Concomitant]
     Active Substance: ASPIRIN
  45. ZANTAC [Concomitant]
     Active Substance: RANITIDINE HYDROCHLORIDE
  46. JANUVIA [Concomitant]
     Active Substance: SITAGLIPTIN PHOSPHATE
  47. MEVACOR [Concomitant]
     Active Substance: LOVASTATIN
  48. TRIAMCINOLONE [Concomitant]
     Active Substance: TRIAMCINOLONE
  49. LEVAQUIN [Concomitant]
     Active Substance: LEVOFLOXACIN
  50. NITROSTAT [Concomitant]
     Active Substance: NITROGLYCERIN
  51. EPIPEN [Concomitant]
     Active Substance: EPINEPHRINE
  52. GLIMEPIRIDE [Concomitant]
     Active Substance: GLIMEPIRIDE
  53. CLOPIDOGREL [Concomitant]
     Active Substance: CLOPIDOGREL BISULFATE

REACTIONS (3)
  - Chronic kidney disease [Not Recovered/Not Resolved]
  - Acute kidney injury [Not Recovered/Not Resolved]
  - Gastrooesophageal reflux disease [Not Recovered/Not Resolved]

NARRATIVE: CASE EVENT DATE: 20060101
